FAERS Safety Report 17561637 (Version 1)
Quarter: 2020Q1

REPORT INFORMATION
  Report Type: Report from Study
  Country: US (occurrence: US)
  Receive Date: 20200319
  Receipt Date: 20200319
  Transmission Date: 20200409
  Serious: Yes (Death)
  Sender: FDA-Public Use
  Company Number: US-PFIZER INC-2020119166

PATIENT
  Age: 63 Year
  Sex: Female
  Weight: 104 kg

DRUGS (25)
  1. DOXORUBICIN HCL [Suspect]
     Active Substance: DOXORUBICIN HYDROCHLORIDE
     Dosage: UNK
     Route: 042
     Dates: start: 20200213
  2. SYNTHROID [Concomitant]
     Active Substance: LEVOTHYROXINE SODIUM
     Dosage: 150 MCG DAILY
  3. ASPIRIN [ACETYLSALICYLIC ACID] [Concomitant]
     Active Substance: ASPIRIN
     Dosage: 81 MG, DAILY
  4. EMLA [Concomitant]
     Active Substance: LIDOCAINE\PRILOCAINE
     Dosage: APPLY TO PORT SITE PRIOR TO ACCESS
  5. GABAPENTIN. [Concomitant]
     Active Substance: GABAPENTIN
     Dosage: 600 MG AT NIGHT
  6. OLANZAPINE. [Concomitant]
     Active Substance: OLANZAPINE
     Dosage: 10 MG ON NIGHTS 1-3 OF CHEMOTHERAPY ORALLY
     Route: 048
  7. CARBOPLATIN. [Suspect]
     Active Substance: CARBOPLATIN
     Indication: BREAST CANCER
     Route: 042
  8. ATIVAN [Concomitant]
     Active Substance: LORAZEPAM
     Indication: NAUSEA
  9. LISINOPRIL. [Concomitant]
     Active Substance: LISINOPRIL
     Dosage: 5 MG, DAILY
  10. MAGNESIUM OXIDE. [Concomitant]
     Active Substance: MAGNESIUM OXIDE
     Dosage: 500 MG, DAILY
  11. ATIVAN [Concomitant]
     Active Substance: LORAZEPAM
     Indication: ANXIETY
     Dosage: 0.5 MG, EVERY 4 TO 6 HOURS AS NEEDED
     Dates: start: 20191114
  12. PACLITAXEL. [Suspect]
     Active Substance: PACLITAXEL
     Indication: BREAST CANCER
     Route: 042
  13. CYCLOPHOSPHAMIDE. [Suspect]
     Active Substance: CYCLOPHOSPHAMIDE
     Dosage: UNK
     Route: 042
     Dates: start: 20200213
  14. LIPITOR [Concomitant]
     Active Substance: ATORVASTATIN CALCIUM
     Dosage: 10 MG, DAILY
  15. VITAMIN B12 [Concomitant]
     Active Substance: CYANOCOBALAMIN
     Dosage: 1500 MCG, DAILY
  16. FISH OIL [Concomitant]
     Active Substance: FISH OIL
     Dosage: 1500 MG, DAILY
  17. COMPAZINE [PROCHLORPERAZINE EDISYLATE] [Concomitant]
     Active Substance: PROCHLORPERAZINE EDISYLATE
     Indication: NAUSEA
     Dosage: 10 MG EVERY 6 HOURS AS NEEDED
  18. TOUJEO [Concomitant]
     Active Substance: INSULIN GLARGINE
     Dosage: 90 UNITS EVERY EVENING ON DAYS 2-4 OF CHEMOTHERAPY
  19. ALOXI [Concomitant]
     Active Substance: PALONOSETRON HYDROCHLORIDE
     Dosage: 250 MCG PRIOR TO CHEMOTHERAPY INTRAVENOUS
     Route: 042
     Dates: start: 20191114
  20. BLINDED THERAPY [Suspect]
     Active Substance: INVESTIGATIONAL PRODUCT
     Indication: BREAST CANCER
     Dosage: UNK
     Dates: start: 20200213
  21. DEXAMETHASONE. [Concomitant]
     Active Substance: DEXAMETHASONE
     Dosage: 12 MG PRIOR TO CHEMOTHERAPY INTRAVENOUS
     Route: 042
     Dates: start: 20191114
  22. TOUJEO [Concomitant]
     Active Substance: INSULIN GLARGINE
     Dosage: 80 UNITS DAILY ON ALL OTHER DAYS
  23. POTASSIUM [Concomitant]
     Active Substance: POTASSIUM
     Dosage: 99 MG, DAILY
  24. DEXAMETHASONE. [Concomitant]
     Active Substance: DEXAMETHASONE
     Dosage: 4 MG TWICE DAILY ON DAYS 2-4 OF CHEMOTHERAPY
     Dates: end: 20200213
  25. EMEND [FOSAPREPITANT MEGLUMINE] [Concomitant]
     Dosage: 150 MG PRIOR TO CHEMOTHERAPY INTRAVENOUS
     Route: 042
     Dates: start: 20191114

REACTIONS (1)
  - Death [Fatal]

NARRATIVE: CASE EVENT DATE: 20200304
